FAERS Safety Report 4430006-8 (Version None)
Quarter: 2004Q3

REPORT INFORMATION
  Report Type: 
  Country: None (occurrence: None)
  Receive Date: 20040820
  Receipt Date: 20040809
  Transmission Date: 20050211
  Serious: Yes (Hospitalization)
  Sender: FDA-Public Use
  Company Number: DE-AMGEN-US087480

PATIENT
  Sex: Female

DRUGS (4)
  1. ENBREL [Suspect]
     Indication: RHEUMATOID ARTHRITIS
     Route: 058
     Dates: start: 20030320, end: 20040503
  2. DICLOFENAC [Concomitant]
  3. PREDNISOLONE [Concomitant]
  4. FOSAMAX [Concomitant]
     Dates: start: 20020401

REACTIONS (2)
  - RHEUMATOID NODULE [None]
  - VASCULITIS [None]
